FAERS Safety Report 6404491-6 (Version None)
Quarter: 2009Q4

REPORT INFORMATION
  Report Type: 
  Country: None (occurrence: None)
  Receive Date: 20091016
  Receipt Date: 20090929
  Transmission Date: 20100525
  Serious: No
  Sender: FDA-Public Use
  Company Number: US-ALEXION-A200900794

PATIENT
  Sex: Female

DRUGS (3)
  1. SOLIRIS [Suspect]
     Indication: PAROXYSMAL NOCTURNAL HAEMOGLOBINURIA
     Dosage: 600 MG, Q WEEK
     Route: 042
     Dates: start: 20080819, end: 20080909
  2. SOLIRIS [Suspect]
     Dosage: 900 MG, Q 2 WEEKS
     Dates: start: 20080916, end: 20090101
  3. SOLIRIS [Suspect]
     Dosage: UNK, Q 12 DAYS
     Dates: start: 20090101

REACTIONS (2)
  - FATIGUE [None]
  - HOT FLUSH [None]
